FAERS Safety Report 20104423 (Version 1)
Quarter: 2021Q4

REPORT INFORMATION
  Report Type: Spontaneous
  Country: US (occurrence: US)
  Receive Date: 20211123
  Receipt Date: 20211123
  Transmission Date: 20220303
  Serious: Yes (Other)
  Sender: FDA-Public Use
  Company Number: US-PFIZER INC-202101631270

PATIENT
  Age: 77 Year
  Sex: Male

DRUGS (5)
  1. LORAZEPAM [Suspect]
     Active Substance: LORAZEPAM
     Indication: Arrhythmia
     Dosage: UNK
  2. APIXABAN [Concomitant]
     Active Substance: APIXABAN
     Dosage: 5 MILLIGRAM, BID
  3. TIKOSYN [Concomitant]
     Active Substance: DOFETILIDE
     Dosage: TWO 500MG TABLETS A DAY
  4. DOFETILIDE [Concomitant]
     Active Substance: DOFETILIDE
     Dosage: UNK
     Route: 065
  5. PROPAFENONE [Concomitant]
     Active Substance: PROPAFENONE
     Dosage: UNK
     Route: 065

REACTIONS (2)
  - Drug ineffective for unapproved indication [Unknown]
  - Off label use [Unknown]
